FAERS Safety Report 7197088-4 (Version None)
Quarter: 2010Q4

REPORT INFORMATION
  Report Type: 
  Country: None (occurrence: None)
  Receive Date: 20101224
  Receipt Date: 20101223
  Transmission Date: 20110411
  Serious: Yes (Hospitalization)
  Sender: FDA-Public Use
  Company Number: IT-BRISTOL-MYERS SQUIBB COMPANY-15409444

PATIENT
  Age: 71 Year
  Sex: Male

DRUGS (2)
  1. COUMADIN [Suspect]
     Indication: CARDIAC VALVE PROSTHESIS USER
     Dosage: INTERRUPTED ON 01NOV2010
     Dates: start: 20010101
  2. ADALAT [Concomitant]
     Dosage: MODIFIED RELEASE TABS
     Route: 048
     Dates: start: 20000101, end: 20101101

REACTIONS (3)
  - ATRIAL FIBRILLATION [None]
  - HAEMORRHAGE [None]
  - MELAENA [None]
